FAERS Safety Report 11520528 (Version 1)
Quarter: 2015Q3

REPORT INFORMATION
  Report Type: Spontaneous
  Country: US (occurrence: US)
  Receive Date: 20150918
  Receipt Date: 20150918
  Transmission Date: 20151125
  Serious: No
  Sender: FDA-Public Use
  Company Number: US-PFIZER INC-2015302864

PATIENT
  Age: 51 Year
  Sex: Male
  Weight: 79 kg

DRUGS (2)
  1. IRON [Concomitant]
     Active Substance: IRON
     Dosage: UNK
  2. TORISEL [Suspect]
     Active Substance: TEMSIROLIMUS
     Indication: RENAL CELL CARCINOMA
     Dosage: UNK

REACTIONS (7)
  - Abdominal distension [Unknown]
  - Weight decreased [Unknown]
  - Eructation [Not Recovered/Not Resolved]
  - Stomatitis [Unknown]
  - Flatulence [Not Recovered/Not Resolved]
  - Mouth ulceration [Unknown]
  - Dysphagia [Unknown]
